FAERS Safety Report 14347540 (Version 1)
Quarter: 2018Q1

REPORT INFORMATION
  Report Type: Spontaneous
  Country: TR (occurrence: TR)
  Receive Date: 20180103
  Receipt Date: 20180103
  Transmission Date: 20180509
  Serious: Yes (Other)
  Sender: FDA-Public Use
  Company Number: TR-BAYER-2017-210146

PATIENT
  Age: 38 Year
  Sex: Female
  Weight: 53 kg

DRUGS (5)
  1. MONTELUKAST SODIUM. [Interacting]
     Active Substance: MONTELUKAST SODIUM
     Indication: SINUSITIS
     Dosage: UNK
     Route: 048
     Dates: start: 20171021, end: 20171030
  2. ANTIBIOTIC [CHLORAMPHENICOL] [Concomitant]
     Indication: ALLERGIC SINUSITIS
     Dosage: UNK
  3. CRAVIT [Concomitant]
     Active Substance: LEVOFLOXACIN
     Indication: SINUSITIS
     Dosage: 500 MG, QD
     Route: 048
     Dates: start: 20171021, end: 20171027
  4. BETA GLUCAN [Concomitant]
     Active Substance: BETA GLUCAN
     Indication: SEASONAL ALLERGY
     Dosage: UNK
     Route: 048
     Dates: start: 20171021
  5. CLARINASE REPETABS [Suspect]
     Active Substance: LORATADINE\PSEUDOEPHEDRINE SULFATE
     Indication: ALLERGIC SINUSITIS
     Dosage: UNK
     Route: 048
     Dates: start: 20171021, end: 20171026

REACTIONS (8)
  - Arrhythmia [Recovered/Resolved]
  - Insomnia [Recovered/Resolved]
  - Palpitations [Recovered/Resolved]
  - Product use in unapproved indication [None]
  - Drug interaction [Recovered/Resolved]
  - Dizziness [Recovered/Resolved]
  - Nervousness [Recovered/Resolved]
  - Energy increased [Recovered/Resolved]

NARRATIVE: CASE EVENT DATE: 201710
